FAERS Safety Report 4654706-X (Version None)
Quarter: 2005Q2

REPORT INFORMATION
  Report Type: 
  Country: None (occurrence: None)
  Receive Date: 20050504
  Receipt Date: 20050418
  Transmission Date: 20051028
  Serious: Yes (Other)
  Sender: FDA-Public Use
  Company Number: 8010183

PATIENT
  Age: 60 Year
  Sex: Female
  Weight: 77 kg

DRUGS (14)
  1. KEPPRA [Suspect]
     Indication: CONVULSION
     Dosage: 500 MG 2/D PO
     Route: 048
     Dates: start: 20050101, end: 20050107
  2. KEPPRA [Suspect]
     Indication: CONVULSION
     Dosage: 1000 MG 2/D PO
     Route: 048
     Dates: start: 20050108, end: 20050114
  3. KEPPRA [Suspect]
     Indication: CONVULSION
     Dosage: 2500 MG PO
     Route: 048
     Dates: start: 20050115, end: 20050201
  4. KEPPRA [Suspect]
     Indication: CONVULSION
     Dosage: 1250 MG
     Dates: start: 20050201
  5. DILANTIN [Suspect]
     Dosage: 200 MG 2/D PO
     Route: 048
     Dates: start: 20020101, end: 20041231
  6. DILANTIN [Suspect]
     Dosage: 200 MG /D PO
     Route: 048
     Dates: start: 20050101, end: 20050107
  7. DILANTIN [Suspect]
     Dosage: 300 MG PO
     Route: 048
     Dates: start: 20050108, end: 20050114
  8. DILANTIN [Suspect]
     Dosage: 100 MG 2/D PO
     Route: 048
     Dates: start: 20050115, end: 20050121
  9. DILANTIN [Suspect]
     Dosage: 100 MG/D PO
     Route: 048
     Dates: start: 20050122, end: 20050128
  10. GLEEVEC [Concomitant]
  11. MERCAPTOPUPRINE [Concomitant]
  12. CALCIUM GLUCONATE [Concomitant]
  13. ROCALTROL [Concomitant]
  14. LEVOTHYROXINE SODIUM [Concomitant]

REACTIONS (7)
  - ACUTE LYMPHOCYTIC LEUKAEMIA [None]
  - CHROMOSOME ANALYSIS ABNORMAL [None]
  - CONDITION AGGRAVATED [None]
  - CONVULSION [None]
  - DRUG INEFFECTIVE [None]
  - MYALGIA [None]
  - WEIGHT INCREASED [None]
